FAERS Safety Report 9659823 (Version 1)
Quarter: 2013Q4

REPORT INFORMATION
  Report Type: Spontaneous
  Country: US (occurrence: US)
  Receive Date: 20131031
  Receipt Date: 20131031
  Transmission Date: 20140711
  Serious: Yes (Hospitalization)
  Sender: FDA-Public Use
  Company Number: US-SUN PHARMACEUTICAL INDUSTRIES LTD-2013SUN04914

PATIENT
  Age: 21 Year
  Sex: Male

DRUGS (6)
  1. CLONAZEPAM 0.5 MG TABLET [Suspect]
     Indication: PRODUCT USED FOR UNKNOWN INDICATION
     Dosage: 0.5 MG, UNK
     Route: 065
  2. CLONAZEPAM 0.5 MG TABLET [Suspect]
     Dosage: 5 MG, UNK
     Route: 065
  3. OLANZAPINE 10 MG TABLETS [Suspect]
     Indication: PRODUCT USED FOR UNKNOWN INDICATION
     Dosage: 10 MG, UNK
     Route: 065
  4. OLANZAPINE 10 MG TABLETS [Suspect]
     Dosage: 600 MG, UNK
     Route: 065
  5. CITALOPRAM HBR TABS 40MG [Suspect]
     Indication: PRODUCT USED FOR UNKNOWN INDICATION
     Dosage: 40 MG, UNK
     Route: 065
  6. CITALOPRAM HBR TABS 40MG [Suspect]
     Dosage: 11.6 G, UNK
     Route: 065

REACTIONS (3)
  - Cardiotoxicity [Unknown]
  - Convulsion [Unknown]
  - Overdose [Unknown]
